FAERS Safety Report 10018927 (Version 1)
Quarter: 2014Q1

REPORT INFORMATION
  Report Type: Spontaneous
  Country: US (occurrence: US)
  Receive Date: 20140318
  Receipt Date: 20140318
  Transmission Date: 20141002
  Serious: Yes (Hospitalization, Other)
  Sender: FDA-Public Use
  Company Number: US-GLAXOSMITHKLINE-A1064144A

PATIENT
  Age: 44 Year
  Sex: Male

DRUGS (2)
  1. TAFINLAR [Suspect]
     Indication: METASTATIC MALIGNANT MELANOMA
     Dosage: 150MG TWICE PER DAY
     Route: 048
  2. MEKINIST [Suspect]
     Indication: METASTATIC MALIGNANT MELANOMA
     Dosage: 2MG PER DAY
     Route: 048

REACTIONS (4)
  - Cerebral haemorrhage [Recovered/Resolved]
  - Convulsion [Recovered/Resolved]
  - Headache [Recovered/Resolved]
  - Surgery [Recovered/Resolved]
